FAERS Safety Report 23449467 (Version 2)
Quarter: 2024Q1

REPORT INFORMATION
  Report Type: Spontaneous
  Country: DE (occurrence: DE)
  Receive Date: 20240129
  Receipt Date: 20240210
  Transmission Date: 20240410
  Serious: Yes (Hospitalization, Other)
  Sender: FDA-Public Use
  Company Number: DE-ABBVIE-5603366

PATIENT
  Age: 35 Year
  Sex: Female
  Weight: 50 kg

DRUGS (1)
  1. RINVOQ [Suspect]
     Active Substance: UPADACITINIB
     Indication: Crohn^s disease
     Route: 048
     Dates: start: 20231027, end: 20231121

REACTIONS (3)
  - Ileal perforation [Recovered/Resolved with Sequelae]
  - Abscess [Recovered/Resolved]
  - Acute abdomen [Unknown]

NARRATIVE: CASE EVENT DATE: 20231121
